FAERS Safety Report 9818955 (Version 1)
Quarter: 2014Q1

REPORT INFORMATION
  Report Type: Spontaneous
  Country: US (occurrence: US)
  Receive Date: 20140115
  Receipt Date: 20140115
  Transmission Date: 20141002
  Serious: Yes (Other)
  Sender: FDA-Public Use
  Company Number: US-ENDO PHARMACEUTICALS INC.-OXAC20130003

PATIENT
  Age: 58 Year
  Sex: Female

DRUGS (2)
  1. OXYCODONE/ACETAMINOPHEN 5MG/325MG [Suspect]
     Indication: DRUG DIVERSION
     Dosage: N/A
  2. OXYCODONE/ACETAMINOPHEN 5MG/325MG [Suspect]
     Indication: PRODUCT USED FOR UNKNOWN INDICATION
     Dosage: UNKNOWN
     Route: 048

REACTIONS (1)
  - Drug diversion [Unknown]
